FAERS Safety Report 24729810 (Version 4)
Quarter: 2025Q1

REPORT INFORMATION
  Report Type: Spontaneous
  Country: US (occurrence: US)
  Receive Date: 20241213
  Receipt Date: 20250329
  Transmission Date: 20250408
  Serious: No
  Sender: ELI LILLY AND COMPANY
  Company Number: US-ELI_LILLY_AND_COMPANY-US202412008386

PATIENT
  Age: 72 Year
  Sex: Female

DRUGS (3)
  1. TIRZEPATIDE [Suspect]
     Active Substance: TIRZEPATIDE
     Indication: Weight control
     Route: 058
     Dates: start: 202404, end: 202407
  2. TIRZEPATIDE [Suspect]
     Active Substance: TIRZEPATIDE
     Route: 058
     Dates: start: 20241025, end: 20241120
  3. TIRZEPATIDE [Suspect]
     Active Substance: TIRZEPATIDE
     Route: 058

REACTIONS (9)
  - Allodynia [Unknown]
  - Skin burning sensation [Unknown]
  - Eye irritation [Unknown]
  - Product tampering [Unknown]
  - Sensitive skin [Unknown]
  - Rash pruritic [Unknown]
  - Paraesthesia [Unknown]
  - Feeling cold [Unknown]
  - Nausea [Recovered/Resolved]
